FAERS Safety Report 12258050 (Version 1)
Quarter: 2016Q2

REPORT INFORMATION
  Report Type: Spontaneous
  Country: US (occurrence: US)
  Receive Date: 20160412
  Receipt Date: 20160412
  Transmission Date: 20160815
  Serious: Yes (Other)
  Sender: FDA-Public Use
  Company Number: US-BAYER-2016-069703

PATIENT
  Age: 17 Year
  Sex: Female

DRUGS (1)
  1. MIRENA [Suspect]
     Active Substance: LEVONORGESTREL
     Indication: CONTRACEPTION
     Dosage: UNK
     Dates: start: 201510

REACTIONS (5)
  - Abdominal pain upper [Recovered/Resolved]
  - Genital haemorrhage [None]
  - Amenorrhoea [None]
  - Abdominal pain [Not Recovered/Not Resolved]
  - Hypoaesthesia [None]

NARRATIVE: CASE EVENT DATE: 2015
